FAERS Safety Report 7525798-5 (Version None)
Quarter: 2011Q2

REPORT INFORMATION
  Report Type: 
  Country: None (occurrence: None)
  Receive Date: 20110606
  Receipt Date: 20110301
  Transmission Date: 20111010
  Serious: No
  Sender: FDA-Public Use
  Company Number: A0916116A

PATIENT

DRUGS (1)
  1. LAMICTAL [Suspect]
     Route: 065

REACTIONS (1)
  - MOUTH ULCERATION [None]
